FAERS Safety Report 4538906-5 (Version None)
Quarter: 2004Q4

REPORT INFORMATION
  Report Type: 
  Country: None (occurrence: None)
  Receive Date: 20041222
  Receipt Date: 20041207
  Transmission Date: 20050328
  Serious: Yes (Other)
  Sender: FDA-Public Use
  Company Number: USA041285906

PATIENT
  Sex: Female

DRUGS (1)
  1. EVISTA [Suspect]
     Dosage: 60 MG

REACTIONS (4)
  - FALL [None]
  - FRACTURED SACRUM [None]
  - INJURY [None]
  - PELVIC FRACTURE [None]
